FAERS Safety Report 4837560-2 (Version None)
Quarter: 2005Q4

REPORT INFORMATION
  Report Type: 
  Country: None (occurrence: None)
  Receive Date: 20051122
  Receipt Date: 20051116
  Transmission Date: 20060501
  Serious: Yes (Death, Other)
  Sender: FDA-Public Use
  Company Number: USA-2005-0021226

PATIENT
  Age: 27 Year
  Sex: Male
  Weight: 64.9 kg

DRUGS (4)
  1. OXYCONTIN [Suspect]
     Indication: DRUG USE FOR UNKNOWN INDICATION
  2. HEROIN (DIAMORPHINE) [Suspect]
     Indication: DRUG USE FOR UNKNOWN INDICATION
  3. METHADONE HCL [Suspect]
     Indication: DRUG USE FOR UNKNOWN INDICATION
  4. COCAINE (COCAINE) [Suspect]
     Indication: DRUG USE FOR UNKNOWN INDICATION

REACTIONS (5)
  - AGGRESSION [None]
  - COMPLETED SUICIDE [None]
  - GUN SHOT WOUND [None]
  - POLYSUBSTANCE ABUSE [None]
  - POLYSUBSTANCE DEPENDENCE [None]
